FAERS Safety Report 12634235 (Version 2)
Quarter: 2016Q3

REPORT INFORMATION
  Report Type: Spontaneous
  Country: US (occurrence: US)
  Receive Date: 20160809
  Receipt Date: 20160923
  Transmission Date: 20161109
  Serious: Yes (Other)
  Sender: FDA-Public Use
  Company Number: US-BAYER-2016-153308

PATIENT
  Age: 28 Year
  Sex: Female
  Weight: 60.32 kg

DRUGS (6)
  1. CYTOTEC [Concomitant]
     Active Substance: MISOPROSTOL
     Dosage: INSERT 3 TABLETS INTO VAGINA NIGHT BEFORE THE PROCEDURE
     Route: 067
  2. SULFACETAMIDE SODIUM [SULFACETAMIDE] [Concomitant]
     Route: 061
  3. MIRENA [Suspect]
     Active Substance: LEVONORGESTREL
     Indication: CONTRACEPTION
  4. MIRENA [Suspect]
     Active Substance: LEVONORGESTREL
     Indication: MENORRHAGIA
     Dosage: 20 MCG/24HR, CONT
     Route: 015
     Dates: start: 20160803
  5. FLAGYL [Concomitant]
     Active Substance: METRONIDAZOLE\METRONIDAZOLE HYDROCHLORIDE
     Dosage: WITH MEALS FOR 14 DAYS500 MG, BID
     Route: 048
  6. CLINDAMYCIN [Concomitant]
     Active Substance: CLINDAMYCIN\CLINDAMYCIN PHOSPHATE
     Route: 061

REACTIONS (6)
  - Post procedural haemorrhage [Unknown]
  - Endometritis [None]
  - Ovarian cyst [None]
  - Procedural pain [Unknown]
  - Pelvic pain [None]
  - Menstruation irregular [None]

NARRATIVE: CASE EVENT DATE: 201608
